FAERS Safety Report 21874454 (Version 2)
Quarter: 2023Q1

REPORT INFORMATION
  Report Type: Spontaneous
  Country: CA (occurrence: CA)
  Receive Date: 20230117
  Receipt Date: 20230215
  Transmission Date: 20230417
  Serious: Yes (Hospitalization)
  Sender: FDA-Public Use
  Company Number: CA-WOODWARD-2023-CA-000090

PATIENT
  Age: 55 Year
  Sex: Female

DRUGS (11)
  1. RABEPRAZOLE SODIUM [Suspect]
     Active Substance: RABEPRAZOLE SODIUM
     Indication: Dyspepsia
     Dosage: 20 MG,12 HR
     Route: 048
     Dates: start: 201608, end: 201705
  2. TRIMEBUTINE [Concomitant]
     Active Substance: TRIMEBUTINE
     Dosage: UNKNOWN
     Route: 065
  3. VENLAFAXINE [Concomitant]
     Active Substance: VENLAFAXINE HYDROCHLORIDE
     Dosage: UNKNOWN
     Route: 065
  4. BUDESONIDE [Concomitant]
     Active Substance: BUDESONIDE
     Dosage: 6 MG,1 D
     Route: 065
     Dates: start: 201608
  5. OMEPRAZOLE [Suspect]
     Active Substance: OMEPRAZOLE
     Dosage: UNKNOWN
     Route: 065
     Dates: start: 2015, end: 201608
  6. RANITIDINE HYDROCHLORIDE [Suspect]
     Active Substance: RANITIDINE HYDROCHLORIDE
     Dosage: 150 MG,1 D
     Route: 065
     Dates: start: 2015, end: 2015
  7. IMODIUM [Suspect]
     Active Substance: LOPERAMIDE HYDROCHLORIDE
     Dosage: UNKNOWN
     Route: 065
  8. METOCLOPRAMIDE [Suspect]
     Active Substance: METOCLOPRAMIDE
     Dosage: UNKNOWN
     Route: 065
  9. ATENOLOL [Concomitant]
     Active Substance: ATENOLOL
     Dosage: UNKNOWN
     Route: 048
  10. ATORVASTATIN [Concomitant]
     Active Substance: ATORVASTATIN
     Dosage: UNKNOWN
     Route: 048
  11. LOSARTAN [Concomitant]
     Active Substance: LOSARTAN
     Dosage: UNKNOWN
     Route: 065

REACTIONS (7)
  - Generalised tonic-clonic seizure [Recovered/Resolved]
  - Product use in unapproved indication [Recovered/Resolved]
  - Drug ineffective for unapproved indication [Recovered/Resolved]
  - Anal incontinence [Recovered/Resolved]
  - Urinary incontinence [Recovered/Resolved]
  - Tongue biting [Recovered/Resolved]
  - Electrolyte imbalance [Recovered/Resolved]

NARRATIVE: CASE EVENT DATE: 20160707
